FAERS Safety Report 20567205 (Version 2)
Quarter: 2022Q1

REPORT INFORMATION
  Report Type: Spontaneous
  Country: RO (occurrence: RO)
  Receive Date: 20220308
  Receipt Date: 20220318
  Transmission Date: 20220424
  Serious: Yes (Other)
  Sender: FDA-Public Use
  Company Number: RO-SUN PHARMACEUTICAL INDUSTRIES LTD-2022RR-328036

PATIENT
  Age: 20 Year
  Sex: Male

DRUGS (21)
  1. FENOFIBRATE [Suspect]
     Active Substance: FENOFIBRATE
     Indication: Ewing^s sarcoma
     Route: 065
  2. CYCLOPHOSPHAMIDE [Suspect]
     Active Substance: CYCLOPHOSPHAMIDE
     Indication: Ewing^s sarcoma
     Route: 065
  3. CYCLOPHOSPHAMIDE [Suspect]
     Active Substance: CYCLOPHOSPHAMIDE
     Route: 065
  4. GEMCITABINE [Suspect]
     Active Substance: GEMCITABINE
     Indication: Ewing^s sarcoma
     Route: 065
  5. DOCETAXEL [Suspect]
     Active Substance: DOCETAXEL
     Indication: Ewing^s sarcoma
     Route: 065
  6. MORPHINE [Suspect]
     Active Substance: MORPHINE
     Indication: Pain
     Route: 065
  7. MORPHINE [Suspect]
     Active Substance: MORPHINE
     Route: 058
  8. CELECOXIB [Suspect]
     Active Substance: CELECOXIB
     Indication: Ewing^s sarcoma
     Route: 065
  9. TOPOTECAN [Suspect]
     Active Substance: TOPOTECAN HYDROCHLORIDE
     Indication: Ewing^s sarcoma
     Route: 065
  10. ETOPOSIDE [Suspect]
     Active Substance: ETOPOSIDE
     Indication: Ewing^s sarcoma
     Route: 065
  11. CARBAMAZEPINE [Concomitant]
     Active Substance: CARBAMAZEPINE
     Indication: Pain
  12. CARBAMAZEPINE [Concomitant]
     Active Substance: CARBAMAZEPINE
  13. GABAPENTIN [Concomitant]
     Active Substance: GABAPENTIN
     Indication: Analgesic therapy
  14. GABAPENTIN [Concomitant]
     Active Substance: GABAPENTIN
  15. FENTANYL [Concomitant]
     Active Substance: FENTANYL
     Indication: Analgesic therapy
     Dosage: 200 MICROGRAM/HOUR
     Route: 065
  16. FENTANYL [Concomitant]
     Active Substance: FENTANYL
     Dosage: 75 MICROGRAM/HOUR
     Route: 062
  17. FENTANYL [Concomitant]
     Active Substance: FENTANYL
     Route: 048
  18. AMITRIPTYLINE [Concomitant]
     Active Substance: AMITRIPTYLINE
     Indication: Analgesic therapy
     Route: 048
  19. NEFOPAM [Concomitant]
     Active Substance: NEFOPAM
     Indication: Analgesic therapy
  20. DEXAMETHASONE [Concomitant]
     Active Substance: DEXAMETHASONE
     Indication: Product used for unknown indication
  21. KETOPROFEN [Concomitant]
     Active Substance: KETOPROFEN
     Indication: Analgesic therapy

REACTIONS (3)
  - Disease progression [Unknown]
  - Drug resistance [Unknown]
  - General physical health deterioration [Unknown]
